FAERS Safety Report 21015904 (Version 1)
Quarter: 2022Q2

REPORT INFORMATION
  Report Type: Spontaneous
  Country: IT (occurrence: IT)
  Receive Date: 20220628
  Receipt Date: 20220628
  Transmission Date: 20220721
  Serious: Yes (Other)
  Sender: FDA-Public Use
  Company Number: IT-ELI_LILLY_AND_COMPANY-IT202205008349

PATIENT
  Sex: Female

DRUGS (2)
  1. LETROZOLE [Suspect]
     Active Substance: LETROZOLE
     Indication: Metastases to spine
  2. ABEMACICLIB [Suspect]
     Active Substance: ABEMACICLIB
     Indication: Invasive ductal breast carcinoma

REACTIONS (4)
  - Asthenia [Unknown]
  - Anaemia [Unknown]
  - Neutropenia [Unknown]
  - Off label use [Unknown]

NARRATIVE: CASE EVENT DATE: 20210101
